FAERS Safety Report 17744673 (Version 1)
Quarter: 2020Q2

REPORT INFORMATION
  Report Type: Spontaneous
  Country: DE (occurrence: DE)
  Receive Date: 20200504
  Receipt Date: 20200504
  Transmission Date: 20200714
  Serious: Yes (Hospitalization)
  Sender: FDA-Public Use
  Company Number: DE-PFIZER INC-2020175419

PATIENT
  Age: 76 Year
  Sex: Male

DRUGS (4)
  1. PHENPROCOUMON [Suspect]
     Active Substance: PHENPROCOUMON
     Dosage: 3 MG (3 MG, BY VALUE)
  2. AMLODIPINE BESILATE [Suspect]
     Active Substance: AMLODIPINE BESYLATE
     Dosage: 5 MG, 2X/DAY ( 1-0-0-1, TABLETS)
  3. METOPROLOL. [Concomitant]
     Active Substance: METOPROLOL
     Dosage: 95 MG, 2X/DAY (95 MG, 1-0-0-1, PROLONGED-RELEASE TABLETS)
  4. URAPIDIL [Concomitant]
     Active Substance: URAPIDIL
     Dosage: 60 MG, 2X/DAY (60 MG, 1-0-0-1, PROLONGED-RELEASE CAPSULES)

REACTIONS (7)
  - Accidental overdose [Unknown]
  - General physical health deterioration [Unknown]
  - Dyspnoea [Unknown]
  - Pallor [Unknown]
  - Dyspnoea exertional [Unknown]
  - Oedema peripheral [Unknown]
  - Anaemia [Unknown]
